FAERS Safety Report 19752750 (Version 1)
Quarter: 2021Q3

REPORT INFORMATION
  Report Type: Other
  Country: GB (occurrence: GB)
  Receive Date: 20210827
  Receipt Date: 20210827
  Transmission Date: 20211014
  Serious: Yes (Other)
  Sender: FDA-Public Use
  Company Number: GB-GW PHARMA-202108GBGW04102

PATIENT

DRUGS (12)
  1. EPIDYOLEX [Suspect]
     Active Substance: CANNABIDIOL
     Dosage: 12.19 MG/KG/DAY, 100 MILLIGRAM, BID (DOSE REDUCED)
     Route: 048
     Dates: start: 20210721, end: 202107
  2. STIRIPENTOL [Concomitant]
     Active Substance: STIRIPENTOL
     Indication: PRODUCT USED FOR UNKNOWN INDICATION
     Dosage: 400 MILLIGRAM, BID
     Route: 048
     Dates: start: 201907, end: 202107
  3. EPIDYOLEX [Suspect]
     Active Substance: CANNABIDIOL
     Dosage: 6.09 MG/KG/DAY, 50 MILLIGRAM, BID (DOSE REDUCED)
     Route: 048
     Dates: start: 20210811
  4. CLOBAZAM. [Concomitant]
     Active Substance: CLOBAZAM
     Indication: PRODUCT USED FOR UNKNOWN INDICATION
     Dosage: 2.5 MILLIGRAM, QD (AT NIGHT)
     Route: 065
     Dates: start: 20210111
  5. SODIUM VALPROATE [Suspect]
     Active Substance: VALPROATE SODIUM
     Indication: SEIZURE
     Dosage: 280 MILLIGRAM, BID
     Route: 048
     Dates: start: 20170630, end: 202108
  6. SODIUM VALPROATE [Suspect]
     Active Substance: VALPROATE SODIUM
     Dosage: 240 MILLIGRAM, BID (DOSE REDUCED)
     Route: 048
     Dates: start: 20210809, end: 202108
  7. EPIDYOLEX [Suspect]
     Active Substance: CANNABIDIOL
     Dosage: 9.76 MG/KG.DAY, 80 MILLIGRAM, BID (DOSE REDUCED)
     Route: 048
     Dates: start: 20210728, end: 202108
  8. EPIDYOLEX [Suspect]
     Active Substance: CANNABIDIOL
     Dosage: 7.93 MG/KG/DAY, 65 MILLIGRAM, BID (DOSE REDUCED)
     Route: 048
     Dates: start: 20210804, end: 202108
  9. SODIUM VALPROATE [Suspect]
     Active Substance: VALPROATE SODIUM
     Dosage: 200 MILLIGRAM, BID (DOSE REDUCED)
     Route: 048
     Dates: start: 20210816
  10. STIRIPENTOL [Concomitant]
     Active Substance: STIRIPENTOL
     Dosage: 300 MILLIGRAM, BID (DOSE DECREASED)
     Route: 048
     Dates: start: 202107
  11. EPIDYOLEX [Suspect]
     Active Substance: CANNABIDIOL
     Indication: SEIZURE
     Dosage: 28MG/KG/DAY, 280 MILLIGRAM, BID
     Route: 048
     Dates: start: 20170630, end: 202104
  12. EPIDYOLEX [Suspect]
     Active Substance: CANNABIDIOL
     Dosage: 14.63 MG/KG/DAY, 120 MILLIGRAM, BID
     Route: 048
     Dates: start: 202104, end: 202107

REACTIONS (7)
  - Diarrhoea [Recovered/Resolved]
  - Platelet count decreased [Recovering/Resolving]
  - Decreased appetite [Recovering/Resolving]
  - Contusion [Unknown]
  - Lethargy [Unknown]
  - Abnormal loss of weight [Recovering/Resolving]
  - Fatigue [Unknown]

NARRATIVE: CASE EVENT DATE: 2021
